FAERS Safety Report 7370664-1 (Version None)
Quarter: 2011Q1

REPORT INFORMATION
  Report Type: 
  Country: None (occurrence: None)
  Receive Date: 20110323
  Receipt Date: 20110317
  Transmission Date: 20110831
  Serious: Yes (Hospitalization)
  Sender: FDA-Public Use
  Company Number: IT-BAYER-2011-024566

PATIENT
  Sex: Male

DRUGS (3)
  1. AMOXICILLIN AND CLAVULANATE POTASSIUM [Concomitant]
     Dosage: DAILY DOSE 25 MG/KG
     Route: 048
     Dates: start: 20110127, end: 20110127
  2. TACHIPIRINA [Concomitant]
     Dosage: DAILY DOSE 7.5 ML
     Route: 048
     Dates: start: 20110127, end: 20110129
  3. IBUPROFEN [Suspect]
     Indication: PYREXIA
     Dosage: 7.5 MG/KG, QOD
     Route: 048
     Dates: start: 20110127, end: 20110129

REACTIONS (1)
  - HAEMATEMESIS [None]
